FAERS Safety Report 23265933 (Version 1)
Quarter: 2023Q4

REPORT INFORMATION
  Report Type: Spontaneous
  Country: US (occurrence: US)
  Receive Date: 20231206
  Receipt Date: 20231206
  Transmission Date: 20240110
  Serious: No
  Sender: FDA-Public Use
  Company Number: US-CELLTRION INC.-2023US020816

PATIENT

DRUGS (4)
  1. TRUXIMA [Suspect]
     Active Substance: RITUXIMAB-ABBS
     Indication: Myositis
     Dosage: 1 G, 2 DOSES GIVEN TWO WEEKS APART
     Route: 042
     Dates: start: 20231114
  2. LISINOPRIL [Concomitant]
     Active Substance: LISINOPRIL
  3. TACROLIMUS [Concomitant]
     Active Substance: TACROLIMUS
  4. OFEV [Concomitant]
     Active Substance: NINTEDANIB

REACTIONS (1)
  - Off label use [Unknown]
